FAERS Safety Report 18558068 (Version 1)
Quarter: 2020Q4

REPORT INFORMATION
  Report Type: Spontaneous
  Country: US (occurrence: US)
  Receive Date: 20201130
  Receipt Date: 20201130
  Transmission Date: 20210114
  Serious: Yes (Other)
  Sender: FDA-Public Use
  Company Number: US-009507513-2011USA016116

PATIENT

DRUGS (2)
  1. PRINIVIL [Suspect]
     Active Substance: LISINOPRIL
     Dosage: UNK
     Route: 048
  2. METAMUCIL [Suspect]
     Active Substance: PLANTAGO SEED
     Dosage: UNKNOWN
     Route: 048
     Dates: start: 20130912, end: 20130913

REACTIONS (6)
  - Swollen tongue [Recovering/Resolving]
  - Hypersensitivity [Recovering/Resolving]
  - Dysphagia [Recovering/Resolving]
  - Swelling face [Recovering/Resolving]
  - Speech disorder [Recovering/Resolving]
  - Swelling [Recovering/Resolving]

NARRATIVE: CASE EVENT DATE: 20130913
